FAERS Safety Report 10368043 (Version 3)
Quarter: 2014Q3

REPORT INFORMATION
  Report Type: Report from Study
  Country: US (occurrence: US)
  Receive Date: 20140807
  Receipt Date: 20140915
  Transmission Date: 20150326
  Serious: Yes (Hospitalization)
  Sender: FDA-Public Use
  Company Number: US-TAKEDA-2014MPI002092

PATIENT
  Age: 48 Year
  Sex: Female
  Weight: 99.77 kg

DRUGS (19)
  1. NEURONTIN [Concomitant]
     Active Substance: GABAPENTIN
     Dosage: 600 MG, QID
     Route: 048
     Dates: start: 20140205
  2. HERBAL SUPPLEMENT [Concomitant]
     Active Substance: HERBALS
     Indication: PAIN
     Dosage: 1 DF, FOUR TIMES DAILY AS NEEDED
     Dates: start: 20140617
  3. VELCADE [Suspect]
     Active Substance: BORTEZOMIB
     Indication: PLASMA CELL MYELOMA
     Dosage: UNK
     Route: 042
     Dates: end: 20131203
  4. NORVASC [Concomitant]
     Active Substance: AMLODIPINE BESYLATE
     Dosage: 5 MG, QD
     Route: 048
     Dates: start: 20140218
  5. OXYCONTIN [Concomitant]
     Active Substance: OXYCODONE HYDROCHLORIDE
     Indication: PAIN
     Dosage: 10 MG, BID
     Route: 048
     Dates: start: 20140711
  6. K-DUR, KLOR CON [Concomitant]
     Dosage: 20 MEQ, BID
     Dates: start: 20140318
  7. LENALIDOMIDE [Suspect]
     Active Substance: LENALIDOMIDE
     Dosage: 10 MG, UNK
     Dates: start: 20140826
  8. PRILOSEC [Concomitant]
     Active Substance: OMEPRAZOLE MAGNESIUM
     Dosage: 40 MG, QD AS NEEDED
     Route: 048
     Dates: start: 20140415
  9. ZOFRAN                             /00955301/ [Concomitant]
     Active Substance: ONDANSETRON HYDROCHLORIDE
     Dosage: 4 MG, UNK
     Route: 048
     Dates: start: 20130724
  10. LASIX [Concomitant]
     Active Substance: FUROSEMIDE
     Indication: OEDEMA
     Dosage: 20 MG, DAILY AS NEEDED
     Route: 048
     Dates: start: 20140421
  11. DEXAMETHASONE. [Suspect]
     Active Substance: DEXAMETHASONE
     Indication: PLASMA CELL MYELOMA
     Dosage: UNK
     Route: 048
     Dates: end: 20131204
  12. B COMPLEX                          /06817001/ [Concomitant]
     Dosage: 1 DF, QD
     Route: 048
     Dates: start: 20140318
  13. LENALIDOMIDE [Suspect]
     Active Substance: LENALIDOMIDE
     Indication: PLASMA CELL MYELOMA
     Dosage: 15 MG, QD FOR 28 DAYS
     Route: 048
     Dates: start: 20140318, end: 20140714
  14. CYMBALTA [Concomitant]
     Active Substance: DULOXETINE HYDROCHLORIDE
     Dosage: 60 MG, QD
     Route: 048
     Dates: start: 20140121
  15. ZOVIRAX [Concomitant]
     Active Substance: ACYCLOVIR
     Dosage: 400 MG, BID
     Route: 048
     Dates: start: 20140205
  16. ELAVIL [Concomitant]
     Active Substance: AMITRIPTYLINE HYDROCHLORIDE
     Dosage: 25 MG, NIGHTLY
     Route: 048
     Dates: start: 20140513
  17. ATIVAN [Concomitant]
     Active Substance: LORAZEPAM
     Dosage: 1 DF, EVERY 6 HOURS AS NEEDED
     Route: 048
     Dates: start: 20140205
  18. ONDANSETRON [Concomitant]
     Active Substance: ONDANSETRON
     Dosage: 4 MG, ONCE
     Route: 042
  19. ROXICODONE [Concomitant]
     Active Substance: OXYCODONE HYDROCHLORIDE
     Indication: PAIN
     Dosage: 5 MG, 1 TO 2 TABLET (5-10 MG TOTAL) FOR EVERY 12 HOURS
     Route: 048

REACTIONS (2)
  - Laceration [Recovered/Resolved]
  - Fall [Recovered/Resolved]

NARRATIVE: CASE EVENT DATE: 20140725
